FAERS Safety Report 5332834-3 (Version None)
Quarter: 2007Q2

REPORT INFORMATION
  Report Type: 
  Country: None (occurrence: None)
  Receive Date: 20070521
  Receipt Date: 20070504
  Transmission Date: 20071010
  Serious: Yes (Hospitalization)
  Sender: FDA-Public Use
  Company Number: 2007BM000053

PATIENT
  Age: 38 Year
  Sex: Male

DRUGS (5)
  1. PREDNISOLONE [Suspect]
     Indication: DERMATOMYOSITIS
     Dosage: SEE IMAGE
     Route: 048
  2. AZATHIOPRINE [Suspect]
     Indication: DERMATOMYOSITIS
     Dosage: 100 MG; QD
  3. HYDROXYCHLOROQUINE SULFATE [Suspect]
     Indication: DERMATOMYOSITIS
     Dosage: 400 MG;QD
  4. IMMUNOGLOBULIN  (IMMUNOGLOBULIN) [Suspect]
     Indication: DERMATOMYOSITIS
     Dosage: Q MONTH; IV
     Route: 042
  5. ORAPRED [Suspect]

REACTIONS (3)
  - CYTOMEGALOVIRUS CHORIORETINITIS [None]
  - LYMPHOCYTE PERCENTAGE DECREASED [None]
  - NEUTROPHIL PERCENTAGE INCREASED [None]
